FAERS Safety Report 20141671 (Version 2)
Quarter: 2022Q1

REPORT INFORMATION
  Report Type: Spontaneous
  Country: CA (occurrence: CA)
  Receive Date: 20211202
  Receipt Date: 20220222
  Transmission Date: 20220423
  Serious: Yes (Other)
  Sender: FDA-Public Use
  Company Number: CA-SAMSUNG BIOEPIS-SB-2021-27690

PATIENT
  Age: 35 Year
  Sex: Female
  Weight: 96 kg

DRUGS (1)
  1. INFLIXIMAB [Suspect]
     Active Substance: INFLIXIMAB
     Indication: Colitis ulcerative
     Route: 042

REACTIONS (11)
  - Anxiety [Recovered/Resolved]
  - Chest discomfort [Recovered/Resolved]
  - Condition aggravated [Not Recovered/Not Resolved]
  - Dyspnoea [Recovered/Resolved]
  - Erythema [Recovered/Resolved]
  - Injection site discomfort [Not Recovered/Not Resolved]
  - Lip pruritus [Recovered/Resolved]
  - Pallor [Recovered/Resolved]
  - Poor venous access [Not Recovered/Not Resolved]
  - Pruritus [Recovered/Resolved]
  - Off label use [Not Recovered/Not Resolved]
